FAERS Safety Report 17027126 (Version 4)
Quarter: 2020Q1

REPORT INFORMATION
  Report Type: Report from Study
  Country: US (occurrence: US)
  Receive Date: 20191113
  Receipt Date: 20200318
  Transmission Date: 20200409
  Serious: Yes (Other)
  Sender: FDA-Public Use
  Company Number: NVSC2019US026680

PATIENT
  Age: 58 Year
  Sex: Male
  Weight: 97 kg

DRUGS (25)
  1. GSK1120212 [Suspect]
     Active Substance: TRAMETINIB
     Indication: MALIGNANT MELANOMA
     Dosage: UNK
     Route: 048
     Dates: start: 20180907, end: 20180907
  2. TRAMETINIB [Suspect]
     Active Substance: TRAMETINIB
     Indication: MALIGNANT MELANOMA
     Dosage: UNK
     Route: 048
     Dates: start: 20180907, end: 20180907
  3. AMLODIPINE [Concomitant]
     Active Substance: AMLODIPINE BESYLATE
     Indication: HYPERTENSION
     Dosage: 5 MG, QD
     Route: 048
     Dates: start: 2013
  4. FLUVOXAMINE [Concomitant]
     Active Substance: FLUVOXAMINE
     Indication: PSYCHIATRIC DISORDER PROPHYLAXIS
     Dosage: 100 MG
     Route: 048
     Dates: start: 1998
  5. METOPROLOL. [Concomitant]
     Active Substance: METOPROLOL
     Indication: HYPERTENSION
     Dosage: 50 MG, QD
     Route: 048
     Dates: start: 2013
  6. INSULIN LISPRO [Concomitant]
     Active Substance: INSULIN LISPRO
     Indication: TYPE 2 DIABETES MELLITUS
     Dosage: 0 TO 6 UNITS
     Route: 058
     Dates: start: 20180922
  7. NYSTATIN. [Concomitant]
     Active Substance: NYSTATIN
     Indication: SKIN INFECTION
     Dosage: UNK
     Route: 061
     Dates: start: 20180922
  8. ASPIRIN. [Concomitant]
     Active Substance: ASPIRIN
     Indication: PROPHYLAXIS
     Dosage: 81 MG, QD
     Route: 048
     Dates: start: 2013
  9. JANUVIA [Concomitant]
     Active Substance: SITAGLIPTIN PHOSPHATE
     Indication: TYPE 2 DIABETES MELLITUS
     Dosage: 100 MG, QD
     Route: 048
     Dates: start: 201807
  10. FLUTICASONE. [Concomitant]
     Active Substance: FLUTICASONE
     Indication: RESPIRATORY DISORDER
     Dosage: UNK
     Route: 055
     Dates: start: 20180922
  11. MUPIROCIN. [Concomitant]
     Active Substance: MUPIROCIN
     Indication: SOFT TISSUE INFECTION
     Dosage: UNK
     Route: 061
     Dates: start: 20180922
  12. METFORMINHYDROCHLORID [Concomitant]
     Indication: TYPE 2 DIABETES MELLITUS
     Dosage: 500 MG, BID
     Route: 048
     Dates: start: 2015
  13. PREDNISONE. [Concomitant]
     Active Substance: PREDNISONE
     Indication: DIARRHOEA
     Dosage: 40 MG, QD
     Route: 048
     Dates: start: 20180914, end: 20180917
  14. ZIPRASIDONE. [Concomitant]
     Active Substance: ZIPRASIDONE
     Indication: PSYCHIATRIC DISORDER PROPHYLAXIS
     Dosage: 80 MG, QD
     Route: 048
     Dates: start: 2008
  15. FERROUS SULFATE. [Concomitant]
     Active Substance: FERROUS SULFATE
     Indication: SUPPLEMENTATION THERAPY
     Dosage: 325 MG, BID
     Route: 048
     Dates: start: 201807
  16. RANITIDINE. [Concomitant]
     Active Substance: RANITIDINE
     Indication: RHINITIS ALLERGIC
     Dosage: 150 MG, BID
     Route: 048
     Dates: start: 201807
  17. IMOTIL [Concomitant]
     Indication: DIARRHOEA
     Dosage: UNK
     Route: 048
     Dates: start: 20180914, end: 20180927
  18. CLINDAMYCIN. [Concomitant]
     Active Substance: CLINDAMYCIN
     Indication: SOFT TISSUE INFECTION
     Dosage: 600 MG, QD
     Route: 042
     Dates: start: 20180921, end: 20180921
  19. VANCOMYCIN [Concomitant]
     Active Substance: VANCOMYCIN
     Indication: SKIN INFECTION
     Dosage: 1500 MG, Q12H
     Route: 042
     Dates: start: 20180922
  20. CLONAZEPAM. [Concomitant]
     Active Substance: CLONAZEPAM
     Indication: ANXIETY
     Dosage: 0.5 MG, BID
     Route: 048
     Dates: start: 2013
  21. BENADRYL [Concomitant]
     Active Substance: DIPHENHYDRAMINE HYDROCHLORIDE
     Indication: RASH MACULO-PAPULAR
     Dosage: UNK
     Route: 061
     Dates: start: 20180922
  22. POTASSIUM CHLORIDE. [Concomitant]
     Active Substance: POTASSIUM CHLORIDE
     Indication: HYPERKALAEMIA
     Dosage: 10 MG, QD
     Route: 042
     Dates: start: 20180924
  23. ATORVASTATIN [Concomitant]
     Active Substance: ATORVASTATIN
     Indication: HYPERTRIGLYCERIDAEMIA
     Dosage: 20 MG, QD
     Route: 048
     Dates: start: 2013
  24. IMODIUM [Concomitant]
     Active Substance: LOPERAMIDE HYDROCHLORIDE
     Indication: DIARRHOEA
     Dosage: 2 MG, PRN
     Route: 048
     Dates: start: 20180809, end: 20180913
  25. CEFAZOLIN [Concomitant]
     Active Substance: CEFAZOLIN
     Indication: SOFT TISSUE INFECTION
     Dosage: 2 G, TID
     Route: 042
     Dates: start: 20180922

REACTIONS (1)
  - Muscular weakness [Recovered/Resolved]

NARRATIVE: CASE EVENT DATE: 20180918
